FAERS Safety Report 11127308 (Version 1)
Quarter: 2015Q2

REPORT INFORMATION
  Report Type: Spontaneous
  Country: US (occurrence: None)
  Receive Date: 20150520
  Receipt Date: 20150520
  Transmission Date: 20150821
  Serious: Yes (Disabling)
  Sender: FDA-Public Use
  Company Number: None

PATIENT
  Age: 75 Year
  Sex: Female
  Weight: 56.25 kg

DRUGS (5)
  1. FOSAMAX [Suspect]
     Active Substance: ALENDRONATE SODIUM
     Indication: BONE DENSITY ABNORMAL
     Route: 048
     Dates: start: 20150423, end: 20150503
  2. LIPITOR [Concomitant]
     Active Substance: ATORVASTATIN CALCIUM
  3. VITAMIN E [Concomitant]
     Active Substance: .ALPHA.-TOCOPHEROL
  4. FOSAMAX [Suspect]
     Active Substance: ALENDRONATE SODIUM
     Indication: OSTEOPENIA
     Route: 048
     Dates: start: 20150423, end: 20150503
  5. ASPIRIN. [Concomitant]
     Active Substance: ASPIRIN

REACTIONS (7)
  - Pain [None]
  - Peripheral swelling [None]
  - Joint swelling [None]
  - Mobility decreased [None]
  - Dysstasia [None]
  - Impaired driving ability [None]
  - Walking aid user [None]

NARRATIVE: CASE EVENT DATE: 20150503
